FAERS Safety Report 5310670-1 (Version None)
Quarter: 2007Q2

REPORT INFORMATION
  Report Type: 
  Country: None (occurrence: None)
  Receive Date: 20070428
  Receipt Date: 20070416
  Transmission Date: 20071010
  Serious: Yes (Other)
  Sender: FDA-Public Use
  Company Number: US-PFIZER INC-2007031284

PATIENT
  Sex: Male
  Weight: 81.8 kg

DRUGS (3)
  1. CHANTIX [Suspect]
     Indication: SMOKING CESSATION THERAPY
     Dates: start: 20070402
  2. TRUSOPT [Concomitant]
  3. LUMIGAN [Concomitant]

REACTIONS (3)
  - ANXIETY [None]
  - DEPRESSION [None]
  - WEIGHT DECREASED [None]
